FAERS Safety Report 21747412 (Version 4)
Quarter: 2023Q1

REPORT INFORMATION
  Report Type: Spontaneous
  Country: JP (occurrence: JP)
  Receive Date: 20221219
  Receipt Date: 20230307
  Transmission Date: 20230418
  Serious: Yes (Hospitalization)
  Sender: FDA-Public Use
  Company Number: JP-GLAXOSMITHKLINE-JP2022JPN186781

PATIENT

DRUGS (22)
  1. LAMICTAL [Suspect]
     Active Substance: LAMOTRIGINE
     Indication: Epilepsy
     Dosage: 25 MG, QD
     Route: 048
     Dates: start: 20220805, end: 20220818
  2. PAXIL [Suspect]
     Active Substance: PAROXETINE HYDROCHLORIDE
     Indication: Depressed mood
     Dosage: 5 MG/DAY
     Route: 048
     Dates: start: 20220420, end: 20220701
  3. LEVETIRACETAM [Suspect]
     Active Substance: LEVETIRACETAM
     Indication: Epilepsy
     Dosage: 1000 MG/DAY
     Route: 048
     Dates: start: 20220701, end: 20220830
  4. PRIMPERAN [Suspect]
     Active Substance: METOCLOPRAMIDE HYDROCHLORIDE
     Indication: Nausea
     Dosage: 5 MG, PRN
     Route: 048
     Dates: start: 20220816, end: 20220819
  5. FOLIC ACID [Suspect]
     Active Substance: FOLIC ACID
     Dosage: 1 MG/DAY, BY CRUSHING
     Route: 048
     Dates: start: 20220819
  6. FAMOTIDINE [Suspect]
     Active Substance: FAMOTIDINE
     Indication: Prophylaxis
     Dosage: 20 MG/DAY
     Route: 048
     Dates: start: 20220818, end: 20221123
  7. HERBALS [Suspect]
     Active Substance: HERBALS
     Indication: Neurosis
     Dosage: 3 DF/DAY
     Route: 048
     Dates: start: 20220701
  8. CALONAL [Suspect]
     Active Substance: ACETAMINOPHEN
     Indication: Pyrexia
     Dosage: UNK, PRN
     Route: 048
  9. MAGNESIUM OXIDE [Suspect]
     Active Substance: MAGNESIUM OXIDE
     Indication: Constipation
     Dosage: 1500 MG/DAY
     Route: 048
     Dates: start: 20220816, end: 20220819
  10. MAGNESIUM OXIDE [Suspect]
     Active Substance: MAGNESIUM OXIDE
     Dosage: 500-1500 MG/DAY
     Route: 048
     Dates: start: 20220901
  11. TRANSAMIN [Suspect]
     Active Substance: TRANEXAMIC ACID
     Indication: Oropharyngeal pain
     Dosage: 750 MG/DAY
     Route: 048
     Dates: start: 20220816, end: 20220819
  12. PREDONINE [Suspect]
     Active Substance: PREDNISOLONE
     Indication: Drug eruption
     Dosage: 50 MG/DAY
     Route: 048
     Dates: start: 20220823, end: 20220824
  13. PREDONINE [Suspect]
     Active Substance: PREDNISOLONE
     Dosage: 40 MG
     Route: 048
     Dates: start: 20220825, end: 20220829
  14. PREDONINE [Suspect]
     Active Substance: PREDNISOLONE
     Dosage: 30 MG
     Route: 048
     Dates: start: 20220830, end: 20220903
  15. PREDONINE [Suspect]
     Active Substance: PREDNISOLONE
     Dosage: 20 MG
     Route: 048
     Dates: start: 20220904, end: 20220907
  16. PREDONINE [Suspect]
     Active Substance: PREDNISOLONE
     Dosage: 10 MG
     Route: 048
     Dates: start: 20220908, end: 20220911
  17. PREDONINE [Suspect]
     Active Substance: PREDNISOLONE
     Dosage: 5 MG
     Route: 048
     Dates: start: 20220912, end: 20220916
  18. PANTETHINE [Suspect]
     Active Substance: PANTETHINE
     Indication: Constipation
     Dosage: 300 MG/DAY
     Route: 048
     Dates: start: 20220831, end: 20220907
  19. FEXOFENADINE [Suspect]
     Active Substance: FEXOFENADINE HYDROCHLORIDE
     Indication: Drug eruption
     Dosage: 120 MG/DAY
     Route: 048
     Dates: start: 20230119
  20. PREDNISOLONE SODIUM SUCCINATE [Suspect]
     Active Substance: PREDNISOLONE SODIUM SUCCINATE
     Indication: Drug eruption
     Dosage: 60 MG/DAY
     Route: 042
     Dates: start: 20220818, end: 20220822
  21. LEVETIRACETAM [Concomitant]
     Active Substance: LEVETIRACETAM
     Indication: Epilepsy
     Dosage: UNK
  22. VIMPAT [Concomitant]
     Active Substance: LACOSAMIDE
     Indication: Epilepsy
     Dosage: 400 MG/DAY
     Route: 048
     Dates: end: 20220630

REACTIONS (10)
  - Drug eruption [Recovered/Resolved]
  - Dehydration [Recovered/Resolved]
  - Malaise [Unknown]
  - Rash [Recovered/Resolved]
  - Pyrexia [Recovered/Resolved]
  - Oropharyngeal pain [Recovered/Resolved]
  - Headache [Recovered/Resolved]
  - Constipation [Not Recovered/Not Resolved]
  - Nausea [Unknown]
  - Exposure during pregnancy [Unknown]

NARRATIVE: CASE EVENT DATE: 20220815
